FAERS Safety Report 8487866-3 (Version None)
Quarter: 2012Q3

REPORT INFORMATION
  Report Type: 
  Country: None (occurrence: None)
  Receive Date: 20120705
  Receipt Date: 20120626
  Transmission Date: 20120928
  Serious: Yes (Hospitalization)
  Sender: FDA-Public Use
  Company Number: US-BAYER-2012-042957

PATIENT
  Age: 26 Year
  Sex: Female
  Weight: 81.633 kg

DRUGS (4)
  1. YASMIN [Suspect]
     Dosage: UNK
     Dates: start: 20060316, end: 20071007
  2. NSAID'S [Concomitant]
     Dosage: UNK
     Dates: start: 20000101, end: 20070101
  3. MINOCYCLINE HCL [Concomitant]
     Dosage: 1 PILL [TIMES] DAILY
     Dates: start: 20070101
  4. FRAGMIN [Concomitant]
     Indication: THROMBOSIS PROPHYLAXIS
     Dosage: UNK
     Dates: start: 20100915

REACTIONS (7)
  - DEEP VEIN THROMBOSIS [None]
  - INJURY [None]
  - CHEST PAIN [None]
  - PAIN [None]
  - CIRCULATORY COLLAPSE [None]
  - PULMONARY EMBOLISM [None]
  - CARDIAC DISORDER [None]
